FAERS Safety Report 12216152 (Version 1)
Quarter: 2016Q1

REPORT INFORMATION
  Report Type: Spontaneous
  Country: US (occurrence: US)
  Receive Date: 20160329
  Receipt Date: 20160329
  Transmission Date: 20160526
  Serious: Yes (Other)
  Sender: FDA-Public Use
  Company Number: US-BRISTOL-MYERS SQUIBB COMPANY-BMS-2016-020843

PATIENT
  Sex: Female

DRUGS (1)
  1. DROXIA [Suspect]
     Active Substance: HYDROXYUREA
     Indication: POLYCYTHAEMIA VERA
     Dosage: 5 MG, QD
     Route: 065
     Dates: end: 201601

REACTIONS (8)
  - Retinal disorder [Unknown]
  - Cyst removal [Unknown]
  - Dyspnoea [Unknown]
  - Infection [Unknown]
  - Neck mass [Unknown]
  - Dizziness [Unknown]
  - Pharyngitis [Unknown]
  - Vision blurred [Unknown]
